FAERS Safety Report 23831212 (Version 3)
Quarter: 2024Q4

REPORT INFORMATION
  Report Type: Report from Study
  Country: US (occurrence: US)
  Receive Date: 20240508
  Receipt Date: 20241128
  Transmission Date: 20250114
  Serious: Yes (Death, Hospitalization)
  Sender: PFIZER
  Company Number: US-PFIZER INC-202400102160

PATIENT
  Age: 85 Year
  Sex: Female
  Weight: 89 kg

DRUGS (19)
  1. VYNDAQEL [Suspect]
     Active Substance: TAFAMIDIS MEGLUMINE
     Indication: Hereditary neuropathic amyloidosis
     Dosage: 80 MG, 1X/DAY
     Route: 048
     Dates: start: 20240124
  2. VYNDAQEL [Suspect]
     Active Substance: TAFAMIDIS MEGLUMINE
     Indication: Cardiac amyloidosis
     Dosage: 80 MG, 1X/DAY
     Route: 048
  3. VYNDAQEL [Suspect]
     Active Substance: TAFAMIDIS MEGLUMINE
     Indication: Acquired ATTR amyloidosis
  4. ACETAMINOPHEN [Concomitant]
     Active Substance: ACETAMINOPHEN
     Dosage: 650 MG, 2X/DAY
     Route: 048
     Dates: start: 20240429
  5. ALLOPURINOL [Concomitant]
     Active Substance: ALLOPURINOL
     Dosage: 50 MG, ALTERNATE DAY
     Route: 048
     Dates: start: 20240912
  6. AMIODARONE HYDROCHLORIDE [Concomitant]
     Active Substance: AMIODARONE HYDROCHLORIDE
     Dosage: 400 MG, 2X/DAY
     Dates: start: 20240603, end: 202406
  7. AMIODARONE HYDROCHLORIDE [Concomitant]
     Active Substance: AMIODARONE HYDROCHLORIDE
     Dosage: 200 MG DAILY
  8. ANORO ELLIPTA [Concomitant]
     Active Substance: UMECLIDINIUM BROMIDE\VILANTEROL TRIFENATATE
     Dosage: INHALE ONE PUFF BY MOUTH ONCE DAILY
     Route: 055
     Dates: start: 20231030
  9. ASPIRIN [Concomitant]
     Active Substance: ASPIRIN
     Dosage: 81 MG, DAILY
     Route: 048
  10. BACITRACIN [Concomitant]
     Active Substance: BACITRACIN
     Dosage: APPLY TOPICALLY TO AFFECTED AREA BID FOR 7 DAYS
     Route: 061
  11. BISACODYL [Concomitant]
     Active Substance: BISACODYL
     Indication: Laxative supportive care
     Dosage: USE ONE SUPP AS NEEDED PER DAY
     Route: 054
  12. BUMETANIDE [Concomitant]
     Active Substance: BUMETANIDE
     Dosage: 2 MG, 2X/DAY (STRENGTH:2 MG)
     Route: 048
  13. BUMETANIDE [Concomitant]
     Active Substance: BUMETANIDE
     Dosage: TAKE ONE MOUTH EVERY EVENING (STRENGTH:1 MG)
     Route: 048
  14. CARVEDILOL [Concomitant]
     Active Substance: CARVEDILOL
     Dosage: 3.125 MG, 2X/DAY
     Route: 048
  15. DOXEPIN HYDROCHLORIDE [Concomitant]
     Active Substance: DOXEPIN HYDROCHLORIDE
     Indication: Sleep disorder
     Dosage: 1 TAB 10 MINUTES PRIOR TO BEDTIME AS NEEDED
     Route: 048
     Dates: start: 20240926
  16. ELIQUIS [Concomitant]
     Active Substance: APIXABAN
     Dosage: 2.5 MG, 2X/DAY
     Route: 048
  17. MELATONIN [Concomitant]
     Active Substance: MELATONIN
     Dosage: 3 MG, 1X/DAY AT BEDTIME
     Route: 048
  18. PREDNISONE [Concomitant]
     Active Substance: PREDNISONE
     Dosage: 10 MG, 1X/DAY
     Route: 048
     Dates: start: 20240926
  19. OXYGEN [Concomitant]
     Active Substance: OXYGEN
     Indication: Oedema
     Dosage: LIFESTYLE COMFORT COM OXYGEN
     Route: 045
     Dates: start: 20230725

REACTIONS (3)
  - Cardiac amyloidosis [Fatal]
  - Disease progression [Fatal]
  - Cardiac failure congestive [Fatal]

NARRATIVE: CASE EVENT DATE: 20241008
